FAERS Safety Report 23955025 (Version 1)
Quarter: 2024Q2

REPORT INFORMATION
  Report Type: Report from Study
  Country: US (occurrence: US)
  Receive Date: 20240610
  Receipt Date: 20240610
  Transmission Date: 20240716
  Serious: Yes (Hospitalization, Other)
  Sender: FDA-Public Use
  Company Number: US-ABBVIE-5614169

PATIENT
  Age: 65 Year
  Sex: Female

DRUGS (1)
  1. SAVELLA [Suspect]
     Active Substance: MILNACIPRAN HYDROCHLORIDE
     Indication: Product used for unknown indication
     Dosage: FORM STRENGTH: 50 MG
     Route: 048
     Dates: start: 2004

REACTIONS (9)
  - Heart rate increased [Recovered/Resolved]
  - Cerebral haemangioma [Unknown]
  - Hypertension [Recovered/Resolved]
  - Palpitations [Recovered/Resolved]
  - Transient ischaemic attack [Unknown]
  - Seizure [Unknown]
  - Confusional state [Unknown]
  - Brain neoplasm [Recovering/Resolving]
  - Brain compression [Unknown]

NARRATIVE: CASE EVENT DATE: 20240128
